FAERS Safety Report 8979441 (Version 2)
Quarter: 2013Q1

REPORT INFORMATION
  Report Type: Report from Study
  Country: US (occurrence: US)
  Receive Date: 20121221
  Receipt Date: 20130102
  Transmission Date: 20140127
  Serious: Yes (Hospitalization)
  Sender: FDA-Public Use
  Company Number: US-PFIZER INC-2012318902

PATIENT
  Sex: Male

DRUGS (8)
  1. PROTONIX [Suspect]
     Dosage: 20 MG, DAILY
     Route: 048
  2. ABIRATERONE ACETATE [Suspect]
     Dosage: 1000 MG, DAILY
     Route: 048
     Dates: start: 20120720
  3. DEXAMETHASONE SODIUM PHOSPHATE [Suspect]
     Dosage: 4 MG, 1X/DAY
     Route: 048
     Dates: start: 20121103
  4. DEXAMETHASONE SODIUM PHOSPHATE [Suspect]
     Dosage: 2 MG, DAILY FOR 2 DAYS THEN 2 MG ORALLY EVERY OTHER DAY X 2 DAYS THEN STOP.
     Route: 048
  5. DOCUSATE SODIUM [Suspect]
     Dosage: 100 MG, 2X/DAY
     Route: 048
  6. SENOKOT-S [Suspect]
     Dosage: 3 DF, 2X/DAY
     Route: 048
  7. METHADONE [Suspect]
     Dosage: 25 MG, THREE A DAY
     Route: 048
  8. NYSTATIN [Suspect]
     Dosage: 500,000 UNITS SWISH AND SPIT FOUR TIMES A DAY

REACTIONS (1)
  - Muscular weakness [Unknown]
